FAERS Safety Report 7768580-6 (Version None)
Quarter: 2011Q3

REPORT INFORMATION
  Report Type: 
  Country: None (occurrence: None)
  Receive Date: 20110922
  Receipt Date: 20110912
  Transmission Date: 20111222
  Serious: Yes (Hospitalization)
  Sender: FDA-Public Use
  Company Number: US-SANOFI-AVENTIS-2011SA059773

PATIENT
  Age: 53 Year
  Sex: Male
  Weight: 52.88 kg

DRUGS (11)
  1. DOCETAXEL [Suspect]
     Indication: NON-SMALL CELL LUNG CANCER STAGE IV
     Route: 041
     Dates: start: 20110808, end: 20110808
  2. DOCETAXEL [Suspect]
     Route: 041
     Dates: start: 20110829, end: 20110829
  3. MIRALAX [Concomitant]
     Indication: CONSTIPATION
     Dates: start: 20110802
  4. OXYCODONE HCL [Concomitant]
     Indication: PAIN
     Dates: start: 20110802
  5. BLINDED THERAPY [Suspect]
     Indication: NON-SMALL CELL LUNG CANCER STAGE IV
     Route: 065
     Dates: start: 20110808, end: 20110829
  6. CORTICOSTEROIDS [Concomitant]
  7. FENTANYL [Concomitant]
     Indication: PAIN
     Dates: start: 20110802
  8. MEGACE [Concomitant]
     Dates: start: 20110817
  9. DOCUSATE SODIUM W/SENNA [Concomitant]
     Indication: CONSTIPATION
     Dates: start: 20110802
  10. OXYCONTIN [Concomitant]
     Indication: PAIN
     Dates: start: 20110802
  11. DEXAMETHASONE [Concomitant]
     Indication: PREMEDICATION
     Dates: start: 20110807

REACTIONS (9)
  - NAUSEA [None]
  - BLOOD POTASSIUM DECREASED [None]
  - PERFORMANCE STATUS DECREASED [None]
  - METABOLIC DISORDER [None]
  - HYPONATRAEMIA [None]
  - VOMITING [None]
  - CONSTIPATION [None]
  - BLOOD CHLORIDE DECREASED [None]
  - TOXICITY TO VARIOUS AGENTS [None]
